FAERS Safety Report 21578432 (Version 1)
Quarter: 2022Q4

REPORT INFORMATION
  Report Type: Spontaneous
  Country: US (occurrence: US)
  Receive Date: 20221110
  Receipt Date: 20221110
  Transmission Date: 20230113
  Serious: No
  Sender: FDA-Public Use
  Company Number: US-BIOGEN-2022BI01167985

PATIENT
  Age: 54 Year
  Sex: Female

DRUGS (1)
  1. PLEGRIDY [Suspect]
     Active Substance: PEGINTERFERON BETA-1A
     Indication: Multiple sclerosis
     Route: 050
     Dates: start: 20160324

REACTIONS (4)
  - Arthropathy [Not Recovered/Not Resolved]
  - Fall [Recovered/Resolved]
  - Illness [Unknown]
  - Pain [Unknown]

NARRATIVE: CASE EVENT DATE: 20220501
